FAERS Safety Report 19282642 (Version 1)
Quarter: 2021Q2

REPORT INFORMATION
  Report Type: Spontaneous
  Country: US (occurrence: US)
  Receive Date: 20210521
  Receipt Date: 20210521
  Transmission Date: 20210717
  Serious: No
  Sender: FDA-Public Use
  Company Number: US-ACCORD-218153

PATIENT

DRUGS (1)
  1. QUETIAPINE. [Suspect]
     Active Substance: QUETIAPINE
     Indication: PRODUCT USED FOR UNKNOWN INDICATION
     Dosage: STRENGTH?300MG IR, ABOUT A MONTH AGO

REACTIONS (5)
  - Nightmare [Unknown]
  - Somnolence [Unknown]
  - Nasal congestion [Unknown]
  - Dry mouth [Unknown]
  - Dyspnoea [Unknown]
